FAERS Safety Report 8138446-0 (Version None)
Quarter: 2012Q1

REPORT INFORMATION
  Report Type: 
  Country: None (occurrence: None)
  Receive Date: 20120213
  Receipt Date: 20120131
  Transmission Date: 20120608
  Serious: Yes (Death, Hospitalization)
  Sender: FDA-Public Use
  Company Number: THQ2012A00943

PATIENT
  Age: 67 Year
  Sex: Male

DRUGS (7)
  1. RHEUMATREX [Suspect]
     Indication: RHEUMATOID ARTHRITIS
     Dosage: 4 MG (2 MG, 2 IN 1 D), 6 (6 MG, 1 IN 1 D), PER ORAL, 8 (8 MG, 1 IN 1 D), PER ORAL
     Route: 048
     Dates: start: 20100123, end: 20100223
  2. RHEUMATREX [Suspect]
     Indication: RHEUMATOID ARTHRITIS
     Dosage: 4 MG (2 MG, 2 IN 1 D), 6 (6 MG, 1 IN 1 D), PER ORAL, 8 (8 MG, 1 IN 1 D), PER ORAL
     Route: 048
     Dates: start: 20100223, end: 20100706
  3. RHEUMATREX [Suspect]
     Indication: RHEUMATOID ARTHRITIS
     Dosage: 4 MG (2 MG, 2 IN 1 D), 6 (6 MG, 1 IN 1 D), PER ORAL, 8 (8 MG, 1 IN 1 D), PER ORAL
     Route: 048
     Dates: start: 20100706, end: 20101101
  4. LANSOPRAZOLE [Suspect]
     Dosage: 15 MG (15 MG, 1 IN 1 D), PER ORAL
     Route: 048
     Dates: start: 20100830, end: 20101101
  5. CELECOXIB [Suspect]
     Dosage: 400 MG (200 MG, 2 IN 1 D), PER ORAL
     Route: 048
     Dates: start: 20100123, end: 20101101
  6. AZULFIDINE [Concomitant]
  7. PROGRAF [Suspect]
     Indication: RHEUMATOID ARTHRITIS
     Dosage: 1 MG (1 MG, 1 IN 1 D), PER ORAL
     Route: 048
     Dates: start: 20100323

REACTIONS (2)
  - PNEUMONIA ASPIRATION [None]
  - BLADDER CANCER [None]
